FAERS Safety Report 20630351 (Version 1)
Quarter: 2022Q1

REPORT INFORMATION
  Report Type: Spontaneous
  Country: DK (occurrence: DK)
  Receive Date: 20220324
  Receipt Date: 20220324
  Transmission Date: 20220424
  Serious: Yes (Hospitalization)
  Sender: FDA-Public Use
  Company Number: None

PATIENT
  Age: 76 Year
  Sex: Female

DRUGS (9)
  1. ATORVASTATIN [Suspect]
     Active Substance: ATORVASTATIN
     Indication: Prophylaxis
     Dosage: STRENGHT: 40 MG, DOSE: 80MG
     Route: 048
     Dates: start: 20201210, end: 202201
  2. COMIRNATY [Suspect]
     Active Substance: TOZINAMERAN
     Indication: COVID-19 immunisation
     Dosage: DOSE 3, 1DF
     Route: 030
     Dates: start: 20211128, end: 20211128
  3. LOSARTAN POTASSIUM KRKA [Concomitant]
     Indication: Cardiac disorder
     Dates: start: 20210830
  4. FUROSEMIDE [Concomitant]
     Active Substance: FUROSEMIDE
     Indication: Diuretic therapy
     Dates: start: 20210521
  5. VAGIFEM [Concomitant]
     Active Substance: ESTRADIOL
     Indication: Osteoporosis
     Dates: start: 20200102
  6. METOPROLOL SUCCINATE [Concomitant]
     Active Substance: METOPROLOL SUCCINATE
     Indication: Arrhythmia
     Dates: start: 20210510
  7. PRADAXA [Concomitant]
     Active Substance: DABIGATRAN ETEXILATE MESYLATE
     Indication: Cerebrovascular accident
     Dates: start: 20201211
  8. SPIRON [Concomitant]
     Indication: Cardiac disorder
     Dates: start: 20211103
  9. DAPAGLIFLOZIN [Concomitant]
     Active Substance: DAPAGLIFLOZIN
     Indication: Cardiac disorder
     Dates: start: 20211005

REACTIONS (4)
  - Muscular weakness [Unknown]
  - Blood creatine phosphokinase increased [Not Recovered/Not Resolved]
  - Myalgia [Unknown]
  - Hepatitis toxic [Not Recovered/Not Resolved]

NARRATIVE: CASE EVENT DATE: 20211201
